FAERS Safety Report 8426910-6 (Version None)
Quarter: 2012Q2

REPORT INFORMATION
  Report Type: 
  Country: None (occurrence: None)
  Receive Date: 20120531
  Receipt Date: 20120524
  Transmission Date: 20120825
  Serious: Yes (Hospitalization, Disabling)
  Sender: FDA-Public Use
  Company Number: 2011SP046645

PATIENT
  Age: 27 Year
  Sex: Female
  Weight: 58.9676 kg

DRUGS (3)
  1. VITAMIN AND MINERAL PRENATAL SUPPLEMENT W/ FOLIC ACID CAP [Concomitant]
  2. NUVARING [Suspect]
     Indication: CONTRACEPTION
     Dates: start: 20030101, end: 20080801
  3. NUVARING [Suspect]
     Indication: CONTRACEPTION
     Dates: end: 20081001

REACTIONS (27)
  - CEREBROVASCULAR ACCIDENT [None]
  - NAUSEA [None]
  - PALPITATIONS [None]
  - NASOPHARYNGITIS [None]
  - CEREBRAL CYST [None]
  - MIGRAINE [None]
  - BRAIN NEOPLASM [None]
  - LETHARGY [None]
  - NECK PAIN [None]
  - CERVICITIS [None]
  - BACK DISORDER [None]
  - ASTHENIA [None]
  - CAESAREAN SECTION [None]
  - HEADACHE [None]
  - BRONCHOSPASM [None]
  - STRESS [None]
  - GLIOSIS [None]
  - MUSCULOSKELETAL PAIN [None]
  - PRESYNCOPE [None]
  - PAPILLOMA VIRAL INFECTION [None]
  - JOINT STIFFNESS [None]
  - MATERNAL EXPOSURE BEFORE PREGNANCY [None]
  - CEREBRAL HAEMORRHAGE [None]
  - HYDROCEPHALUS [None]
  - DIZZINESS [None]
  - CERVICAL DYSPLASIA [None]
  - HYPERSENSITIVITY [None]
